FAERS Safety Report 8573915-0 (Version None)
Quarter: 2012Q3

REPORT INFORMATION
  Report Type: 
  Country: None (occurrence: None)
  Receive Date: 20120806
  Receipt Date: 20120727
  Transmission Date: 20120928
  Serious: Yes (Hospitalization)
  Sender: FDA-Public Use
  Company Number: JP-VERTEX PHARMACEUTICALS INC.-AE-2012-010997

PATIENT
  Age: 66 Year
  Sex: Female

DRUGS (4)
  1. URSO 250 [Concomitant]
     Route: 048
  2. TELAVIC (TELAPREVIR) [Suspect]
     Indication: HEPATITIS C
     Route: 048
     Dates: start: 20120616, end: 20120712
  3. RIBAVIRIN [Concomitant]
     Route: 048
     Dates: start: 20120616, end: 20120712
  4. PEG-INTRON [Concomitant]
     Route: 058
     Dates: start: 20120616, end: 20120712

REACTIONS (2)
  - DEEP VEIN THROMBOSIS [None]
  - PULMONARY EMBOLISM [None]
